FAERS Safety Report 6174119-1 (Version None)
Quarter: 2009Q2

REPORT INFORMATION
  Report Type: 
  Country: None (occurrence: None)
  Receive Date: 20090430
  Receipt Date: 20090423
  Transmission Date: 20091009
  Serious: Yes (Other)
  Sender: FDA-Public Use
  Company Number: US-JNJCH-2009000499

PATIENT
  Age: 38 Year
  Sex: Male
  Weight: 95.3 kg

DRUGS (1)
  1. ROGAINE [Suspect]
     Indication: ALOPECIA
     Dosage: TEXT:1/2 CAPFUL TWICE DAILY
     Route: 061
     Dates: start: 20081201, end: 20090107

REACTIONS (10)
  - ADVERSE REACTION [None]
  - ALOPECIA [None]
  - ANXIETY [None]
  - BLOOD PRESSURE INCREASED [None]
  - CHEST DISCOMFORT [None]
  - CONDITION AGGRAVATED [None]
  - HYPERHIDROSIS [None]
  - PALPITATIONS [None]
  - PARAESTHESIA [None]
  - SENSORY DISTURBANCE [None]
